FAERS Safety Report 8783373 (Version 1)
Quarter: 2012Q4

REPORT INFORMATION
  Report Type: 
  Country: US (occurrence: US)
  Receive Date: 20120913
  Receipt Date: 20120913
  Transmission Date: 20130627
  Serious: No
  Sender: FDA-Public Use
  Company Number: US-VERTEX PHARMACEUTICAL INC.-AE-2012-008927

PATIENT
  Age: 44 None
  Sex: Female

DRUGS (3)
  1. INCIVEK [Suspect]
     Indication: HEPATITIS C
     Route: 048
     Dates: end: 20120604
  2. PEGASYS [Concomitant]
     Indication: HEPATITIS C
     Route: 058
     Dates: end: 20120604
  3. RIBAVIRIN [Concomitant]
     Indication: HEPATITIS C
     Route: 048
     Dates: end: 20120604

REACTIONS (6)
  - Eye swelling [Not Recovered/Not Resolved]
  - Ocular hyperaemia [Not Recovered/Not Resolved]
  - Eye discharge [Not Recovered/Not Resolved]
  - Rash generalised [Recovered/Resolved]
  - Viral load increased [Not Recovered/Not Resolved]
  - Pruritus [Not Recovered/Not Resolved]
